FAERS Safety Report 24528699 (Version 1)
Quarter: 2024Q4

REPORT INFORMATION
  Report Type: Spontaneous
  Country: US (occurrence: US)
  Receive Date: 20241021
  Receipt Date: 20241021
  Transmission Date: 20250114
  Serious: No
  Sender: PERRIGO
  Company Number: US-PERRIGO-24US000744

PATIENT
  Sex: Female

DRUGS (3)
  1. UNISOM SLEEPTABS [Suspect]
     Active Substance: DOXYLAMINE SUCCINATE
     Indication: Insomnia
     Dosage: UNKNOWN, UNKNOWN
     Route: 048
     Dates: start: 2004, end: 202312
  2. UNISOM SLEEPTABS [Suspect]
     Active Substance: DOXYLAMINE SUCCINATE
     Dosage: UNKNOWN, UNKNOWN
     Route: 048
     Dates: start: 2024
  3. MAGNESIUM GLUCONATE [Concomitant]
     Active Substance: MAGNESIUM GLUCONATE
     Indication: Insomnia
     Dosage: UNKNOWN, UNKNOWN
     Route: 065

REACTIONS (10)
  - Drug withdrawal syndrome [Recovering/Resolving]
  - Dyspnoea [Unknown]
  - Nausea [Unknown]
  - Feeling cold [Unknown]
  - Palpitations [Unknown]
  - Fatigue [Recovering/Resolving]
  - Somnolence [Unknown]
  - Insomnia [Unknown]
  - Hair texture abnormal [Unknown]
  - Incorrect product administration duration [Unknown]

NARRATIVE: CASE EVENT DATE: 20040101
